FAERS Safety Report 19373208 (Version 2)
Quarter: 2021Q3

REPORT INFORMATION
  Report Type: Report from Study
  Country: US (occurrence: US)
  Receive Date: 20210604
  Receipt Date: 20210920
  Transmission Date: 20211014
  Serious: Yes (Hospitalization)
  Sender: FDA-Public Use
  Company Number: US-BAYER-2021-148489

PATIENT
  Age: 72 Year
  Sex: Female

DRUGS (1)
  1. BETASERON [Suspect]
     Active Substance: INTERFERON BETA-1B
     Indication: MULTIPLE SCLEROSIS
     Dosage: 0.25 MG, QOD
     Route: 058
     Dates: start: 20140519

REACTIONS (5)
  - Cerebrovascular accident [None]
  - Urinary tract infection [None]
  - Knee operation [None]
  - Urinary tract infection [None]
  - Ankle operation [None]

NARRATIVE: CASE EVENT DATE: 20210914
